FAERS Safety Report 26030451 (Version 1)
Quarter: 2025Q4

REPORT INFORMATION
  Report Type: Spontaneous
  Country: US (occurrence: None)
  Receive Date: 20251112
  Receipt Date: 20251112
  Transmission Date: 20260117
  Serious: No
  Sender: UMEDICA LABS
  Company Number: US-Umedica-000710

PATIENT
  Sex: Male

DRUGS (1)
  1. TADALAFIL [Suspect]
     Active Substance: TADALAFIL
     Indication: Erectile dysfunction
     Dosage: PILLS

REACTIONS (2)
  - Headache [Unknown]
  - Drug ineffective [Unknown]
